FAERS Safety Report 15832005 (Version 1)
Quarter: 2019Q1

REPORT INFORMATION
  Report Type: Spontaneous
  Country: US (occurrence: US)
  Receive Date: 20190115
  Receipt Date: 20190115
  Transmission Date: 20190417
  Serious: Yes (Hospitalization)
  Sender: FDA-Public Use
  Company Number: None

PATIENT
  Age: 20 Year
  Sex: Male
  Weight: 65.25 kg

DRUGS (2)
  1. SUDAFED PE CONGESTION [Suspect]
     Active Substance: PHENYLEPHRINE HYDROCHLORIDE
  2. LEXAPRO [Suspect]
     Active Substance: ESCITALOPRAM OXALATE

REACTIONS (1)
  - Overdose [None]

NARRATIVE: CASE EVENT DATE: 20180507
